FAERS Safety Report 5672795-0 (Version None)
Quarter: 2008Q1

REPORT INFORMATION
  Report Type: 
  Country: None (occurrence: None)
  Receive Date: 20080319
  Receipt Date: 20070716
  Transmission Date: 20080703
  Serious: Yes (Hospitalization)
  Sender: FDA-Public Use
  Company Number: US-KINGPHARMUSA00001-K200700896

PATIENT

DRUGS (9)
  1. ALTACE [Suspect]
     Indication: HYPERTENSION
     Dosage: 10 MG, BID
     Route: 048
     Dates: start: 20020301
  2. HYDRALAZINE HCL [Suspect]
     Indication: HYPERTENSION
     Dosage: 75 MG, QID
     Route: 048
     Dates: start: 20020301
  3. TRIAMTERENE AND HYDROCHLOROTHIAZIDE [Suspect]
     Dosage: UNK MG, UNK
     Dates: start: 20020301
  4. CATAPRES-TTS-1 [Suspect]
     Dosage: .3 MG, QD
     Dates: start: 20020301
  5. AVALIDE [Suspect]
  6. TENEX [Suspect]
     Dosage: UNK, UNK
  7. CLONIDINE [Concomitant]
  8. POTASSIUM CHLORIDE [Concomitant]
  9. TEKLUMA [Concomitant]
     Dosage: 150 MG, UNK

REACTIONS (2)
  - DRUG INEFFECTIVE [None]
  - RENAL IMPAIRMENT [None]
